FAERS Safety Report 24602614 (Version 2)
Quarter: 2024Q4

REPORT INFORMATION
  Report Type: Spontaneous
  Country: US (occurrence: US)
  Receive Date: 20241111
  Receipt Date: 20241216
  Transmission Date: 20250114
  Serious: No
  Sender: ROCHE
  Company Number: US-ROCHE-10000124269

PATIENT
  Age: 71 Year
  Sex: Female
  Weight: 87.54 kg

DRUGS (3)
  1. XOLAIR PFS [Suspect]
     Active Substance: OMALIZUMAB
     Indication: Idiopathic urticaria
     Route: 058
     Dates: start: 201501
  2. XOLAIR PFS [Suspect]
     Active Substance: OMALIZUMAB
     Indication: Urticarial vasculitis
     Route: 058
     Dates: start: 202009
  3. XOLAIR PFS [Suspect]
     Active Substance: OMALIZUMAB
     Indication: Systemic lupus erythematosus

REACTIONS (4)
  - Product complaint [Unknown]
  - No adverse event [Unknown]
  - Syringe issue [Unknown]
  - Underdose [Unknown]

NARRATIVE: CASE EVENT DATE: 20241031
